FAERS Safety Report 8284858-4 (Version None)
Quarter: 2012Q2

REPORT INFORMATION
  Report Type: 
  Country: None (occurrence: None)
  Receive Date: 20120413
  Receipt Date: 20110502
  Transmission Date: 20120825
  Serious: No
  Sender: FDA-Public Use
  Company Number: US-ASTRAZENECA-2011SE26319

PATIENT
  Age: 26 Year
  Sex: Male

DRUGS (3)
  1. NEXIUM [Suspect]
     Dosage: 1 CAPSULE
     Route: 048
  2. NEXIUM [Suspect]
     Dosage: 2 CAPSULE
     Route: 048
  3. PREVACID [Concomitant]

REACTIONS (5)
  - THERAPY REGIMEN CHANGED [None]
  - DRUG INEFFECTIVE [None]
  - MALAISE [None]
  - GASTROOESOPHAGEAL REFLUX DISEASE [None]
  - GASTROINTESTINAL PAIN [None]
